FAERS Safety Report 6310125-1 (Version None)
Quarter: 2009Q3

REPORT INFORMATION
  Report Type: 
  Country: None (occurrence: None)
  Receive Date: 20090811
  Receipt Date: 20090728
  Transmission Date: 20100115
  Serious: Yes (Hospitalization)
  Sender: FDA-Public Use
  Company Number: KV200800136

PATIENT
  Age: 68 Year
  Sex: Female

DRUGS (10)
  1. MORPHINE SULFATE [Suspect]
     Indication: PAIN
     Dosage: 60 MG, TID, ORAL
     Route: 048
     Dates: start: 20080312, end: 20080501
  2. METFORMIN HCL [Concomitant]
  3. NABUMETONE [Concomitant]
  4. VITAPLEX /00461201/ (VITAMIN NOS) [Concomitant]
  5. HYDROCHLOROTHIAZIDE [Concomitant]
  6. TIMOLOL MALEATE [Concomitant]
  7. LIPITOR [Concomitant]
  8. LEVOTHYROXINE (LEVOTHROXINE) [Concomitant]
  9. STOOL SOFTENER (DOCUSATE SODIUM) [Concomitant]
  10. MORPHINE SULFATE INJ [Concomitant]

REACTIONS (14)
  - ATRIAL FIBRILLATION [None]
  - BLOOD COUNT ABNORMAL [None]
  - CHOLECYSTECTOMY [None]
  - DIABETES MELLITUS [None]
  - GALLBLADDER DISORDER [None]
  - HOT FLUSH [None]
  - HYPERTENSION [None]
  - INFECTION [None]
  - LETHARGY [None]
  - NAUSEA [None]
  - PRODUCT QUALITY ISSUE [None]
  - PRODUCT SUBSTITUTION ISSUE [None]
  - SOMNOLENCE [None]
  - URINARY TRACT INFECTION [None]
